FAERS Safety Report 10085787 (Version 1)
Quarter: 2014Q2

REPORT INFORMATION
  Report Type: Spontaneous
  Country: DE (occurrence: None)
  Receive Date: 20140416
  Receipt Date: 20140416
  Transmission Date: 20141212
  Serious: Yes (Other)
  Sender: FDA-Public Use
  Company Number: 2014-19335

PATIENT
  Age: 64 Year
  Sex: Female

DRUGS (1)
  1. EYLEA [Suspect]
     Indication: AGE-RELATED MACULAR DEGENERATION
     Dosage: 1 IN 6 WEEKS
     Dates: start: 201305

REACTIONS (5)
  - Pneumonia [None]
  - Eye disorder [None]
  - Cataract [None]
  - Hypotension [None]
  - Drug prescribing error [None]
